FAERS Safety Report 11514052 (Version 1)
Quarter: 2015Q3

REPORT INFORMATION
  Report Type: Spontaneous
  Country: US (occurrence: US)
  Receive Date: 20150903
  Receipt Date: 20150903
  Transmission Date: 20151125
  Serious: No
  Sender: FDA-Public Use
  Company Number: US-ELI_LILLY_AND_COMPANY-US201210002140

PATIENT
  Age: 52 Year
  Sex: Female

DRUGS (2)
  1. VITAMIN D [Concomitant]
     Active Substance: CHOLECALCIFEROL
     Dosage: UNK, UNKNOWN
  2. CYMBALTA [Suspect]
     Active Substance: DULOXETINE HYDROCHLORIDE
     Indication: DEPRESSION
     Dosage: 60 MG, QD
     Dates: end: 201209

REACTIONS (5)
  - Pain in extremity [Unknown]
  - Arthralgia [Unknown]
  - Joint swelling [Unknown]
  - Peripheral swelling [Unknown]
  - Drug withdrawal syndrome [Unknown]
